FAERS Safety Report 17670071 (Version 1)
Quarter: 2020Q2

REPORT INFORMATION
  Report Type: Spontaneous
  Country: IT (occurrence: IT)
  Receive Date: 20200415
  Receipt Date: 20200415
  Transmission Date: 20200713
  Serious: Yes (Other)
  Sender: FDA-Public Use
  Company Number: NVSC2020IT099896

PATIENT
  Age: 3 Year
  Sex: Male
  Weight: 15 kg

DRUGS (2)
  1. AMOXICILLIN. [Suspect]
     Active Substance: AMOXICILLIN
     Indication: EAR INFECTION
     Dosage: 1 DF (AT 1 INTERVAL)
     Route: 048
     Dates: start: 20191229, end: 20191229
  2. IBUPROFEN. [Concomitant]
     Active Substance: IBUPROFEN
     Indication: EAR INFECTION
     Route: 048
     Dates: start: 20191229, end: 20191229

REACTIONS (2)
  - Lip oedema [Recovering/Resolving]
  - Eye oedema [Recovering/Resolving]

NARRATIVE: CASE EVENT DATE: 20191229
